FAERS Safety Report 6569208-3 (Version None)
Quarter: 2010Q1

REPORT INFORMATION
  Report Type: 
  Country: None (occurrence: None)
  Receive Date: 20100201
  Receipt Date: 20100201
  Transmission Date: 20100710
  Serious: No
  Sender: FDA-Public Use
  Company Number: None

PATIENT
  Age: 69 Year
  Sex: Male
  Weight: 83.9154 kg

DRUGS (2)
  1. ZICAM ALLERGY RELIEF GEL SWABS [Suspect]
     Indication: NASAL CONGESTION
     Dosage: 1 SWAB 1 NASAL
     Route: 045
     Dates: start: 20100126, end: 20100126
  2. ZICAM ALLERGY RELIEF GEL SWABS [Suspect]
     Indication: RHINORRHOEA
     Dosage: 1 SWAB 1 NASAL
     Route: 045
     Dates: start: 20100126, end: 20100126

REACTIONS (3)
  - AGEUSIA [None]
  - ANOSMIA [None]
  - NASAL DISCOMFORT [None]
